FAERS Safety Report 9682242 (Version 2)
Quarter: 2014Q1

REPORT INFORMATION
  Report Type: Report from Study
  Country: CA (occurrence: CA)
  Receive Date: 20131112
  Receipt Date: 20140326
  Transmission Date: 20141002
  Serious: Yes (Other)
  Sender: FDA-Public Use
  Company Number: CA-ROCHE-1299949

PATIENT
  Age: 54 Year
  Sex: Male
  Weight: 82.9 kg

DRUGS (20)
  1. RITUXAN [Suspect]
     Indication: CHRONIC LYMPHOCYTIC LEUKAEMIA
     Route: 042
     Dates: start: 20100317, end: 20140311
  2. RITUXAN [Suspect]
     Route: 042
     Dates: start: 20131022
  3. DIPHENHYDRAMINE HCL [Concomitant]
     Indication: PREMEDICATION
     Route: 042
     Dates: start: 20100317, end: 20140311
  4. ACETAMINOPHEN [Concomitant]
     Indication: PREMEDICATION
     Route: 042
     Dates: start: 20100317, end: 20140311
  5. ACETAMINOPHEN [Concomitant]
     Route: 048
  6. METHYLPREDNISOLONE [Concomitant]
     Indication: PREMEDICATION
     Route: 042
     Dates: start: 20100317, end: 20140311
  7. DECADRON [Concomitant]
     Indication: PREMEDICATION
     Route: 042
  8. DEMEROL [Concomitant]
     Indication: PREMEDICATION
     Route: 042
  9. GRAVOL [Concomitant]
     Indication: PREMEDICATION
     Route: 042
  10. LOSEC [Concomitant]
  11. PREDNISONE [Concomitant]
     Dosage: TO BE DECREASED AS INFUSIONS CONTINUE
     Route: 065
  12. MYFORTIC [Concomitant]
  13. PRISTIQ [Concomitant]
  14. VALTREX [Concomitant]
  15. ABILIFY [Concomitant]
  16. PENTAMIDINE [Concomitant]
  17. FOLIC ACID [Concomitant]
  18. ZOPICLONE [Concomitant]
  19. BISOPROLOL [Concomitant]
  20. ACTONEL [Concomitant]
     Route: 065

REACTIONS (3)
  - Bone marrow transplant [Unknown]
  - Chronic graft versus host disease [Unknown]
  - Pulmonary mycosis [Unknown]
